FAERS Safety Report 5368578-1 (Version None)
Quarter: 2007Q2

REPORT INFORMATION
  Report Type: 
  Country: None (occurrence: None)
  Receive Date: 20070625
  Receipt Date: 20070614
  Transmission Date: 20071010
  Serious: Yes (Other)
  Sender: FDA-Public Use
  Company Number: US-JNJFOC-20070500652

PATIENT
  Sex: Female
  Weight: 54.43 kg

DRUGS (3)
  1. ARESTIN [Suspect]
     Route: 048
  2. ARESTIN [Suspect]
     Indication: DRUG USE FOR UNKNOWN INDICATION
     Route: 048
  3. VITAMIN CAP [Concomitant]
     Route: 065

REACTIONS (2)
  - EXOSTOSIS [None]
  - STOMATITIS [None]
